FAERS Safety Report 12320117 (Version 1)
Quarter: 2016Q2

REPORT INFORMATION
  Report Type: Other
  Country: US (occurrence: US)
  Receive Date: 20160430
  Receipt Date: 20160430
  Transmission Date: 20160815
  Serious: Yes (Other)
  Sender: FDA-Public Use
  Company Number: US-GUTHY-RENKER LLC-1051244

PATIENT
  Age: 65 Year
  Sex: Female

DRUGS (2)
  1. ENBREL [Concomitant]
     Active Substance: ETANERCEPT
  2. MEANINGFUL BEAUTY CINDY CRAWFORD ANTIOXIDANT SPF 20 UVA/UVB [Suspect]
     Active Substance: AVOBENZONE\OCTINOXATE\OCTISALATE\OXYBENZONE
     Indication: PHOTOSENSITIVITY REACTION
     Route: 061
     Dates: start: 20160209, end: 20160219

REACTIONS (5)
  - Visual impairment [None]
  - Eye pain [None]
  - Lacrimation increased [None]
  - Blepharitis [Not Recovered/Not Resolved]
  - Eye swelling [None]

NARRATIVE: CASE EVENT DATE: 20160219
